FAERS Safety Report 7270009-1 (Version None)
Quarter: 2011Q1

REPORT INFORMATION
  Report Type: 
  Country: None (occurrence: None)
  Receive Date: 20110124
  Receipt Date: 20110124
  Transmission Date: 20110831
  Serious: Yes (Other)
  Sender: FDA-Public Use
  Company Number: None

PATIENT
  Age: 55 Year
  Sex: Male
  Weight: 106.5953 kg

DRUGS (1)
  1. METRONIDAZOLE [Suspect]
     Dosage: 1 TABLET 3 EVERY 8 HOURS PO
     Route: 048
     Dates: start: 20100915, end: 20100925

REACTIONS (3)
  - DEPRESSION [None]
  - MENTAL DISORDER [None]
  - PRODUCT QUALITY ISSUE [None]
